FAERS Safety Report 7537960-6 (Version None)
Quarter: 2011Q2

REPORT INFORMATION
  Report Type: 
  Country: None (occurrence: None)
  Receive Date: 20110609
  Receipt Date: 20110526
  Transmission Date: 20111010
  Serious: Yes (Hospitalization, Other)
  Sender: FDA-Public Use
  Company Number: US-UCBSA-028222

PATIENT
  Sex: Male
  Weight: 38.55 kg

DRUGS (10)
  1. SELDAMATE [Concomitant]
     Route: 048
  2. VIMPAT [Suspect]
     Indication: CONVULSION
     Route: 042
     Dates: start: 20101121, end: 20100101
  3. FELBATOL [Concomitant]
     Dates: start: 20040101
  4. VIMPAT [Suspect]
     Route: 048
     Dates: start: 20100101, end: 20100101
  5. VIMPAT [Suspect]
     Dosage: 75 MG AM AND 50 MG PM
     Dates: start: 20110101
  6. SELBATOL [Concomitant]
     Indication: CONVULSION
     Route: 048
  7. CLOBAZAM [Suspect]
     Indication: CONVULSION
     Dosage: 30MG,2/1/2 ,5 TABLETS DAILY
     Route: 048
  8. VIMPAT [Suspect]
     Dates: start: 20101201
  9. VIMPAT [Suspect]
     Dosage: 150MG AM / 100MG PM, DOSE IS WEANING OFF
     Route: 048
     Dates: start: 20110315
  10. PREVACID [Concomitant]
     Indication: GASTROOESOPHAGEAL REFLUX DISEASE
     Route: 048
     Dates: start: 20101201

REACTIONS (12)
  - PHARYNGITIS [None]
  - LARYNX IRRITATION [None]
  - MEDICATION ERROR [None]
  - HOSPITALISATION [None]
  - PALPITATIONS [None]
  - THROAT IRRITATION [None]
  - FATIGUE [None]
  - VOCAL CORD PARALYSIS [None]
  - CONVULSION [None]
  - GASTROOESOPHAGEAL REFLUX DISEASE [None]
  - ODYNOPHAGIA [None]
  - CHEMICAL BURN OF RESPIRATORY TRACT [None]
